FAERS Safety Report 18869191 (Version 2)
Quarter: 2022Q4

REPORT INFORMATION
  Report Type: Report from Study
  Country: US (occurrence: None)
  Receive Date: 20210209
  Receipt Date: 20221020
  Transmission Date: 20230113
  Serious: Yes (Hospitalization)
  Sender: FDA-Public Use
  Company Number: US-EISAI MEDICAL RESEARCH-EC-2021-086277

PATIENT
  Age: 51 Year
  Sex: Male
  Weight: 113 kg

DRUGS (1)
  1. LENVIMA [Suspect]
     Active Substance: LENVATINIB
     Indication: Thyroid cancer
     Route: 048
     Dates: start: 202012, end: 2021

REACTIONS (5)
  - Sedation [Unknown]
  - Fatigue [Recovering/Resolving]
  - Impaired healing [Recovering/Resolving]
  - Blood viscosity increased [Recovering/Resolving]
  - Wound haemorrhage [Unknown]

NARRATIVE: CASE EVENT DATE: 20210101
